FAERS Safety Report 4758005-7 (Version None)
Quarter: 2005Q3

REPORT INFORMATION
  Report Type: 
  Country: None (occurrence: None)
  Receive Date: 20050830
  Receipt Date: 20050817
  Transmission Date: 20060218
  Serious: Yes (Hospitalization)
  Sender: FDA-Public Use
  Company Number: 2005095084

PATIENT
  Age: 43 Year
  Sex: Male
  Weight: 81.8 kg

DRUGS (11)
  1. SILDENAFIL CITRATE [Suspect]
     Indication: PULMONARY HYPERTENSION
     Dosage: (, 3 IN 1 D), ORAL
     Route: 048
     Dates: start: 20050409, end: 20050708
  2. K-DUR 10 [Concomitant]
  3. LASIX [Concomitant]
  4. ALDACTONE [Concomitant]
  5. KLONOPIN [Concomitant]
  6. REGLAN [Concomitant]
  7. PREVACID [Concomitant]
  8. TORADOL [Concomitant]
  9. ZOFRAN [Concomitant]
  10. DILAUDID [Concomitant]
  11. PROMETHAZINE [Concomitant]

REACTIONS (10)
  - ASTHENIA [None]
  - BILE DUCT STONE [None]
  - CELLULITIS [None]
  - CHOLELITHIASIS [None]
  - DEHYDRATION [None]
  - FATIGUE [None]
  - HYPOTENSION [None]
  - HYPOXIA [None]
  - PANCREATITIS ACUTE [None]
  - TACHYCARDIA [None]
